FAERS Safety Report 21714575 (Version 1)
Quarter: 2022Q4

REPORT INFORMATION
  Report Type: Spontaneous
  Country: US (occurrence: None)
  Receive Date: 20221210
  Receipt Date: 20221210
  Transmission Date: 20230112
  Serious: Yes (Other)
  Sender: FDA-Public Use
  Company Number: None

PATIENT
  Age: 10 Year
  Sex: Female
  Weight: 51.75 kg

DRUGS (2)
  1. CHILDRENS MOTRIN [Suspect]
     Active Substance: IBUPROFEN
     Indication: Viral infection
     Route: 048
     Dates: start: 20221209, end: 20221210
  2. gnc teen multivitamin [Concomitant]

REACTIONS (5)
  - Somnolence [None]
  - Dizziness [None]
  - Confusional state [None]
  - Delirium [None]
  - Palpitations [None]

NARRATIVE: CASE EVENT DATE: 20221210
